FAERS Safety Report 7647381-3 (Version None)
Quarter: 2011Q3

REPORT INFORMATION
  Report Type: 
  Country: None (occurrence: None)
  Receive Date: 20110726
  Receipt Date: 20110711
  Transmission Date: 20111222
  Serious: Yes (Other)
  Sender: FDA-Public Use
  Company Number: LTI2011A00197

PATIENT
  Age: 71 Year
  Sex: Female

DRUGS (2)
  1. ACTOS [Suspect]
     Indication: TYPE 2 DIABETES MELLITUS
     Dosage: 15 MG (15 MG, 1 IN 1 D), ORAL
     Route: 048
     Dates: start: 20090416, end: 20090826
  2. ACTOS [Suspect]
     Indication: TYPE 2 DIABETES MELLITUS
     Dosage: 45 MG (45 MG, 1 IN 1 D) ORAL
     Route: 048
     Dates: start: 20080716, end: 20090416

REACTIONS (9)
  - WEIGHT INCREASED [None]
  - TOE WALKING [None]
  - VISION BLURRED [None]
  - DYSPNOEA [None]
  - DEAFNESS [None]
  - SWELLING [None]
  - ACTIVITIES OF DAILY LIVING IMPAIRED [None]
  - CATARACT [None]
  - DISABILITY [None]
